FAERS Safety Report 6333796-2 (Version None)
Quarter: 2009Q3

REPORT INFORMATION
  Report Type: 
  Country: None (occurrence: None)
  Receive Date: 20090829
  Receipt Date: 20090611
  Transmission Date: 20100115
  Serious: No
  Sender: FDA-Public Use
  Company Number: US-ABBOTT-09P-163-0579546-00

PATIENT
  Age: 67 Year
  Sex: Female

DRUGS (3)
  1. SIMCOR [Suspect]
     Indication: PROPHYLAXIS
     Dosage: 500MG/20MG,1 IN 1 DAY
     Route: 048
     Dates: start: 20090530
  2. SIMCOR [Suspect]
     Indication: BLOOD CHOLESTEROL INCREASED
  3. LISINOPRIL [Concomitant]
     Indication: HYPERTENSION
     Route: 048

REACTIONS (3)
  - BURNING SENSATION [None]
  - FEELING HOT [None]
  - NASAL CONGESTION [None]
